FAERS Safety Report 5019142-5 (Version None)
Quarter: 2006Q2

REPORT INFORMATION
  Report Type: 
  Country: None (occurrence: None)
  Receive Date: 20060531
  Receipt Date: 20060519
  Transmission Date: 20061013
  Serious: Yes (Hospitalization)
  Sender: FDA-Public Use
  Company Number: 06-0060PO

PATIENT
  Age: 78 Year
  Sex: Male

DRUGS (4)
  1. MEFENAMIC ACID [Suspect]
     Indication: ARTHRALGIA
     Dosage: 350 MG, PRN
     Dates: start: 20060321, end: 20060405
  2. TRAMAL (TRAMAL HYDROCHLORIDE) [Suspect]
     Indication: ARTHRALGIA
     Dosage: ORAL
     Route: 048
     Dates: start: 20060321, end: 20060323
  3. CARBIDOPA, STALEVO (LEVADOPA) [Suspect]
     Indication: PARKINSONISM
     Dosage: ORAL 600 MG DAILY
     Route: 048
     Dates: start: 20051201
  4. AMANTADINE SULFATE (PK-MERZ) [Suspect]
     Indication: PARKINSON'S DISEASE
     Dosage: 100MG, DAILY, ORAL
     Route: 048
     Dates: start: 20051201, end: 20060403

REACTIONS (8)
  - CONFUSIONAL STATE [None]
  - DISORIENTATION [None]
  - DYSKINESIA [None]
  - HALLUCINATION, VISUAL [None]
  - HYPERHIDROSIS [None]
  - ILL-DEFINED DISORDER [None]
  - OVERDOSE [None]
  - PULSE ABNORMAL [None]
